FAERS Safety Report 8949105 (Version 1)
Quarter: 2012Q4

REPORT INFORMATION
  Report Type: 
  Country: US (occurrence: US)
  Receive Date: 20121206
  Receipt Date: 20121206
  Transmission Date: 20130627
  Serious: No
  Sender: FDA-Public Use
  Company Number: US-BAYER-2012-127987

PATIENT
  Age: 76 Year
  Sex: Female
  Weight: 91 kg

DRUGS (7)
  1. ALEVE CAPLET/TABLET,MIDOL EXTENDED RELIEF CAPLET [Suspect]
     Dosage: 6 to 7 DF, UNK
     Route: 048
  2. CARVEDILOL [Concomitant]
  3. DIOVAN [Concomitant]
  4. HYDROCHLOROTHIAZID [Concomitant]
  5. EVISTA [RALOXIFENE HYDROCHLORIDE] [Concomitant]
  6. DETROL LA [Concomitant]
  7. SYNTHROID [Concomitant]

REACTIONS (1)
  - Overdose [None]
